FAERS Safety Report 12140764 (Version 5)
Quarter: 2016Q3

REPORT INFORMATION
  Report Type: Spontaneous
  Country: US (occurrence: US)
  Receive Date: 20160303
  Receipt Date: 20160905
  Transmission Date: 20161109
  Serious: Yes (Other)
  Sender: FDA-Public Use
  Company Number: US-TEVA-638845USA

PATIENT
  Age: 39 Year
  Sex: Female

DRUGS (4)
  1. ZECUITY [Suspect]
     Active Substance: SUMATRIPTAN SUCCINATE
     Route: 062
     Dates: start: 20160303, end: 20160303
  2. IMITREX [Concomitant]
     Active Substance: SUMATRIPTAN SUCCINATE
  3. ZECUITY [Suspect]
     Active Substance: SUMATRIPTAN SUCCINATE
     Indication: MIGRAINE
     Route: 062
     Dates: start: 20160212, end: 20160212
  4. VERAPAMIL [Concomitant]
     Active Substance: VERAPAMIL HYDROCHLORIDE

REACTIONS (23)
  - Application site erythema [Not Recovered/Not Resolved]
  - Product physical issue [Unknown]
  - Application site bruise [Not Recovered/Not Resolved]
  - Application site erosion [Not Recovered/Not Resolved]
  - Incorrect drug administration duration [Unknown]
  - Circumstance or information capable of leading to medication error [Unknown]
  - Sunburn [Not Recovered/Not Resolved]
  - Application site discolouration [Not Recovered/Not Resolved]
  - Application site vesicles [Not Recovered/Not Resolved]
  - Product adhesion issue [Unknown]
  - Application site exfoliation [Not Recovered/Not Resolved]
  - Application site irritation [Not Recovered/Not Resolved]
  - Application site burn [Not Recovered/Not Resolved]
  - Application site pruritus [Recovered/Resolved]
  - Application site pain [Not Recovered/Not Resolved]
  - Scratch [Not Recovered/Not Resolved]
  - Application site discomfort [Not Recovered/Not Resolved]
  - Application site scar [Not Recovered/Not Resolved]
  - Device battery issue [Unknown]
  - Product leakage [Unknown]
  - Application site warmth [Not Recovered/Not Resolved]
  - Wrong technique in product usage process [Unknown]
  - Application site paraesthesia [Not Recovered/Not Resolved]

NARRATIVE: CASE EVENT DATE: 20160212
